FAERS Safety Report 21798568 (Version 1)
Quarter: 2022Q4

REPORT INFORMATION
  Report Type: Report from Study
  Country: US (occurrence: US)
  Receive Date: 20221230
  Receipt Date: 20221230
  Transmission Date: 20230113
  Serious: No
  Sender: FDA-Public Use
  Company Number: US-ABBVIE-4252467

PATIENT
  Sex: Female

DRUGS (1)
  1. HUMIRA [Suspect]
     Active Substance: ADALIMUMAB
     Indication: Crohn^s disease
     Route: 058

REACTIONS (5)
  - Injection site bruising [Unknown]
  - Wrong technique in product usage process [Unknown]
  - Device issue [Unknown]
  - Injection site injury [Unknown]
  - Injection site haemorrhage [Not Recovered/Not Resolved]
